FAERS Safety Report 20596719 (Version 1)
Quarter: 2022Q1

REPORT INFORMATION
  Report Type: Report from Study
  Country: US (occurrence: US)
  Receive Date: 20220315
  Receipt Date: 20220315
  Transmission Date: 20220423
  Serious: No
  Sender: FDA-Public Use
  Company Number: US-NOVARTISTESTPH-NVSC2022US059146

PATIENT
  Age: 73 Year
  Sex: Female

DRUGS (1)
  1. PROMACTA [Suspect]
     Active Substance: ELTROMBOPAG OLAMINE
     Indication: Platelet count increased
     Dosage: 50 MG, QD
     Route: 048
     Dates: start: 20220216, end: 20220311

REACTIONS (1)
  - Rash [Unknown]
